FAERS Safety Report 8583196 (Version 3)
Quarter: 2013Q4

REPORT INFORMATION
  Report Type: Report from Study
  Country: US (occurrence: US)
  Receive Date: 20120529
  Receipt Date: 20131114
  Transmission Date: 20140711
  Serious: Yes (Hospitalization, Other)
  Sender: FDA-Public Use
  Company Number: US-TEVA-339639USA

PATIENT
  Age: 55 Year
  Sex: Female
  Weight: 79 kg

DRUGS (15)
  1. FLUOROURACIL [Suspect]
     Indication: NEOPLASM
     Dosage: DAYS 1-3 AND 15-17 OF 28 DAY CYCLE 2400 MG/M2
     Route: 042
     Dates: start: 20120322, end: 20120405
  2. ABT-888 (VELIPARIB) [Suspect]
     Dosage: CYCLE 1 DAYS 15-19, THEN ON DAYS 1-5 AND 15-19 OF OTHER 28 DAY CYCLE (2 IN 1D)
     Route: 048
     Dates: start: 20120405, end: 20120410
  3. IRINOTECAN [Suspect]
     Dosage: DOSE TEXT DAY 1 AND DAY 15 OF 28 DAY CYCLE (150 MG/M2)
     Route: 042
     Dates: start: 20120322, end: 20120405
  4. FOLINIC ACID [Suspect]
     Indication: NEOPLASM
     Dosage: DOSE TEXT DAY 1 AND DAY 15 OF EACH 28 DAY CYCLE (400 MG/M2)
     Dates: start: 20120322, end: 20120405
  5. VITAMIN D [Concomitant]
     Indication: SUPPLEMENTATION THERAPY
  6. LORAZEPAM [Concomitant]
     Indication: ANXIETY
     Dates: start: 2012
  7. METFORMIN [Concomitant]
     Indication: DIABETES MELLITUS
     Dosage: 2000 MILLIGRAM DAILY;
     Dates: start: 20110325
  8. MACROGOL 3350 [Concomitant]
     Indication: CONSTIPATION
     Dosage: AS REQUIRED
     Dates: start: 20120322
  9. ONDANSETRON [Concomitant]
     Indication: PROPHYLAXIS OF NAUSEA AND VOMITING
     Dosage: AS REQUIRED-PRECHEOM
     Dates: start: 20120322
  10. ONDANSETRON [Concomitant]
     Indication: NAUSEA
  11. ONDANSETRON [Concomitant]
     Indication: VOMITING
  12. PROCHLORPERAZINE EDISYLATE [Concomitant]
     Indication: PROPHYLAXIS OF NAUSEA AND VOMITING
     Dosage: AS REQUIRED
     Dates: start: 20120322
  13. PROCHLORPERAZINE EDISYLATE [Concomitant]
     Indication: NAUSEA
  14. PROCHLORPERAZINE EDISYLATE [Concomitant]
     Indication: VOMITING
  15. OMEPRAZOLE [Concomitant]
     Indication: GASTROOESOPHAGEAL REFLUX DISEASE
     Dosage: AS REQUIRED
     Dates: start: 20120329

REACTIONS (1)
  - Clostridium difficile colitis [Recovered/Resolved]
